FAERS Safety Report 6987933-7 (Version None)
Quarter: 2010Q3

REPORT INFORMATION
  Report Type: 
  Country: None (occurrence: None)
  Receive Date: 20100830
  Receipt Date: 20081219
  Transmission Date: 20110219
  Serious: No
  Sender: FDA-Public Use
  Company Number: 2008-00149

PATIENT
  Sex: Female
  Weight: 56.6996 kg

DRUGS (7)
  1. ZICAM COLD REMEDY NASAL GEL [Suspect]
     Indication: NASOPHARYNGITIS
     Dosage: QID X 1 DAY
     Dates: start: 20081015, end: 20081016
  2. ZICAM COLD REMEDY RAPIDMELTS [Suspect]
     Indication: NASOPHARYNGITIS
     Dosage: QID X 1 DAY
     Dates: start: 20081015, end: 20081016
  3. SYNTHROID [Concomitant]
  4. CYTOMEL [Concomitant]
  5. METFORMIN HCL [Concomitant]
  6. ALLEGRA [Concomitant]
  7. CELEXA [Concomitant]

REACTIONS (2)
  - AGEUSIA [None]
  - ANOSMIA [None]
